FAERS Safety Report 7779007-2 (Version None)
Quarter: 2011Q3

REPORT INFORMATION
  Report Type: 
  Country: None (occurrence: None)
  Receive Date: 20110926
  Receipt Date: 20110921
  Transmission Date: 20111222
  Serious: Yes (Hospitalization)
  Sender: FDA-Public Use
  Company Number: FR-JNJFOC-20110909279

PATIENT
  Sex: Female

DRUGS (8)
  1. ACETAMINOPHEN AND TRAMADOL HCL [Concomitant]
  2. XARELTO [Suspect]
     Indication: ILL-DEFINED DISORDER
     Route: 048
     Dates: start: 20110408, end: 20110414
  3. PRAVASTATIN [Concomitant]
  4. EXTRANASE [Concomitant]
  5. IMOVANE [Concomitant]
  6. MYOLASTAN [Concomitant]
  7. LEVOTHYROXINE SODIUM [Concomitant]
  8. LOVENOX [Concomitant]

REACTIONS (2)
  - GAMMA-GLUTAMYLTRANSFERASE INCREASED [None]
  - HAEMATOMA [None]
